FAERS Safety Report 5013777-1 (Version None)
Quarter: 2006Q2

REPORT INFORMATION
  Report Type: 
  Country: None (occurrence: None)
  Receive Date: 20060525
  Receipt Date: 20060314
  Transmission Date: 20061013
  Serious: Yes (Death)
  Sender: FDA-Public Use
  Company Number: T200600364

PATIENT
  Age: 11 Year
  Sex: Female

DRUGS (2)
  1. PAMELOR [Suspect]
     Dosage: 75 MG X 80, ORAL
     Route: 048
  2. GABAPENTIN [Suspect]

REACTIONS (17)
  - ARRHYTHMIA [None]
  - BLOOD PH INCREASED [None]
  - BLOOD POTASSIUM DECREASED [None]
  - BLOOD SODIUM INCREASED [None]
  - CARDIAC ARREST [None]
  - COMPLETED SUICIDE [None]
  - CONVULSION [None]
  - DISSEMINATED INTRAVASCULAR COAGULATION [None]
  - HYPOGLYCAEMIA [None]
  - HYPOTENSION [None]
  - INTENTIONAL DRUG MISUSE [None]
  - INTESTINAL ISCHAEMIA [None]
  - INTESTINAL PERFORATION [None]
  - LOSS OF CONSCIOUSNESS [None]
  - OLIGURIA [None]
  - SEPSIS [None]
  - TACHYCARDIA [None]
